FAERS Safety Report 6930656-0 (Version None)
Quarter: 2010Q3

REPORT INFORMATION
  Report Type: 
  Country: None (occurrence: None)
  Receive Date: 20100818
  Receipt Date: 20100602
  Transmission Date: 20110219
  Serious: No
  Sender: FDA-Public Use
  Company Number: A0862432A

PATIENT
  Sex: Female

DRUGS (14)
  1. COREG CR [Suspect]
     Dosage: 10MG TWICE PER DAY
     Route: 048
     Dates: start: 20100313
  2. CATAPRES [Concomitant]
  3. VYTORIN [Concomitant]
  4. VASOTEC [Concomitant]
  5. LASIX [Concomitant]
  6. CARDURA [Concomitant]
  7. ASPIRIN [Concomitant]
  8. PROCRIT [Concomitant]
  9. DIGOXIN [Concomitant]
  10. IMDUR [Concomitant]
  11. IRON [Concomitant]
  12. PLAVIX [Concomitant]
  13. VITAMIN D [Concomitant]
  14. INSULIN [Concomitant]

REACTIONS (1)
  - OVERDOSE [None]
